FAERS Safety Report 14450781 (Version 1)
Quarter: 2018Q1

REPORT INFORMATION
  Report Type: Spontaneous
  Country: US (occurrence: US)
  Receive Date: 20180126
  Receipt Date: 20180126
  Transmission Date: 20180509
  Serious: Yes (Hospitalization)
  Sender: FDA-Public Use
  Company Number: None

PATIENT
  Age: 24 Year
  Sex: Male

DRUGS (1)
  1. BUPRENORPHINE-NALOXONE [Suspect]
     Active Substance: BUPRENORPHINE HYDROCHLORIDE\NALOXONE HYDROCHLORIDE
     Indication: DRUG ABUSE
     Route: 040

REACTIONS (3)
  - Pulmonary embolism [None]
  - Endocarditis bacterial [None]
  - Septic embolus [None]

NARRATIVE: CASE EVENT DATE: 20171215
